FAERS Safety Report 6564408-0 (Version None)
Quarter: 2010Q1

REPORT INFORMATION
  Report Type: 
  Country: None (occurrence: None)
  Receive Date: 20100201
  Receipt Date: 20100128
  Transmission Date: 20100710
  Serious: Yes (Hospitalization)
  Sender: FDA-Public Use
  Company Number: FR-SANOFI-AVENTIS-2009SA001110

PATIENT
  Age: 77 Year
  Sex: Female
  Weight: 80 kg

DRUGS (5)
  1. LANTUS [Suspect]
     Dosage: DOSE:80 INTERNATIONAL UNIT(S)/MILLILITRE
     Route: 058
     Dates: start: 20080101
  2. KARDEGIC [Suspect]
     Route: 048
  3. SERESTA [Concomitant]
     Route: 048
  4. LAROXYL [Concomitant]
  5. PRAZEPAM [Concomitant]
     Route: 048

REACTIONS (1)
  - EPISTAXIS [None]
